FAERS Safety Report 20444753 (Version 3)
Quarter: 2023Q1

REPORT INFORMATION
  Report Type: Spontaneous
  Country: US (occurrence: US)
  Receive Date: 20220208
  Receipt Date: 20230322
  Transmission Date: 20230418
  Serious: Yes (Other)
  Sender: FDA-Public Use
  Company Number: US-PFIZER INC-2019429928

PATIENT
  Age: 72 Year
  Sex: Female
  Weight: 83.46 kg

DRUGS (2)
  1. XELJANZ [Suspect]
     Active Substance: TOFACITINIB CITRATE
     Indication: Rheumatoid arthritis
     Dosage: 5 MG, 3X/DAY
     Route: 048
  2. BENICAR [Concomitant]
     Active Substance: OLMESARTAN MEDOXOMIL
     Indication: Hypertension
     Dosage: 25 MG, 1X/DAY

REACTIONS (4)
  - Squamous cell carcinoma [Unknown]
  - Off label use [Unknown]
  - COVID-19 [Unknown]
  - Pain [Unknown]
